FAERS Safety Report 7404408-1 (Version None)
Quarter: 2011Q2

REPORT INFORMATION
  Report Type: 
  Country: None (occurrence: None)
  Receive Date: 20110408
  Receipt Date: 20110407
  Transmission Date: 20111010
  Serious: Yes (Other)
  Sender: FDA-Public Use
  Company Number: KR-ABBOTT-11P-090-0716274-00

PATIENT
  Age: 31 Year
  Sex: Female

DRUGS (7)
  1. HALOPERIDOL [Concomitant]
     Indication: PRODUCT USED FOR UNKNOWN INDICATION
  2. OLANZAPINE [Suspect]
     Indication: SCHIZOPHRENIA
     Dosage: DAILY
     Route: 065
  3. OLANZAPINE [Suspect]
     Dosage: DAILY
     Dates: start: 20080101, end: 20080101
  4. CLOZAPINE [Suspect]
     Indication: SCHIZOPHRENIA
     Dosage: DAILY
     Route: 065
     Dates: start: 20081113, end: 20081121
  5. VALPROATE SODIUM [Suspect]
     Indication: SCHIZOPHRENIA
     Dosage: DAILY
     Dates: end: 20080101
  6. OLANZAPINE [Suspect]
  7. VALPROATE SODIUM [Suspect]
     Dosage: DAILY
     Dates: start: 20080101, end: 20081202

REACTIONS (2)
  - GRAND MAL CONVULSION [None]
  - NEUTROPENIA [None]
